FAERS Safety Report 21283959 (Version 1)
Quarter: 2022Q3

REPORT INFORMATION
  Report Type: Spontaneous
  Country: US (occurrence: None)
  Receive Date: 20220901
  Receipt Date: 20220901
  Transmission Date: 20221026
  Serious: No
  Sender: FDA-Public Use
  Company Number: None

PATIENT
  Age: 60 Year
  Sex: Male

DRUGS (2)
  1. DUPIXENT [Suspect]
     Active Substance: DUPILUMAB
     Indication: Nasal polyps
     Dosage: 300MG EVERY OTHER WEEK SUBCUTANEOUS
     Route: 058
     Dates: start: 20220715
  2. DUPIXENT [Suspect]
     Active Substance: DUPILUMAB
     Indication: Anosmia

REACTIONS (4)
  - Device defective [None]
  - Device leakage [None]
  - Therapy interrupted [None]
  - Device malfunction [None]

NARRATIVE: CASE EVENT DATE: 20220831
